FAERS Safety Report 20614175 (Version 1)
Quarter: 2022Q1

REPORT INFORMATION
  Report Type: Spontaneous
  Country: US (occurrence: US)
  Receive Date: 20220320
  Receipt Date: 20220320
  Transmission Date: 20220423
  Serious: No
  Sender: FDA-Public Use
  Company Number: US-ORGANON-O2203USA001734

PATIENT
  Sex: Male

DRUGS (2)
  1. PREGNYL [Suspect]
     Active Substance: CHORIOGONADOTROPIN ALFA
     Indication: Testicular failure
     Dosage: INJECT 500 UNITS UNDER THE SKIN (SUBCUTANEOUS INJECTION) THREE TIMES PER WEEK
     Route: 030
  2. STERILE WATER [Suspect]
     Active Substance: WATER
     Indication: Testicular failure
     Dosage: UNK

REACTIONS (1)
  - Weight decreased [Unknown]
